FAERS Safety Report 13764853 (Version 2)
Quarter: 2017Q4

REPORT INFORMATION
  Report Type: Spontaneous
  Country: BR (occurrence: BR)
  Receive Date: 20170718
  Receipt Date: 20171031
  Transmission Date: 20180320
  Serious: Yes (Other)
  Sender: FDA-Public Use
  Company Number: BR-ABBVIE-17P-020-2040898-00

PATIENT
  Age: 79 Year
  Sex: Female
  Weight: 58 kg

DRUGS (3)
  1. DEPAKENE [Suspect]
     Active Substance: VALPROIC ACID
     Indication: SEIZURE
     Dosage: DAILY DOSE: 900 MG, ONE TABLET IN THE MORNING, 2 TABLETS AT NIGHT
     Route: 048
     Dates: start: 2016
  2. DIPYRONE [Concomitant]
     Active Substance: DIPYRONE
     Indication: BACK PAIN
  3. DEPAKENE [Suspect]
     Active Substance: VALPROIC ACID
     Indication: MANIA

REACTIONS (1)
  - Lung disorder [Unknown]
